FAERS Safety Report 24309228 (Version 2)
Quarter: 2024Q3

REPORT INFORMATION
  Report Type: Spontaneous
  Country: US (occurrence: US)
  Receive Date: 20240911
  Receipt Date: 20240930
  Transmission Date: 20241016
  Serious: Yes (Other)
  Sender: Alora Pharma
  Company Number: US-ACELLA PHARMACEUTICALS, LLC-2024ALO00443

PATIENT
  Age: 36 Year
  Sex: Female
  Weight: 80.726 kg

DRUGS (1)
  1. NP THYROID [Suspect]
     Active Substance: LEVOTHYROXINE\LIOTHYRONINE
     Indication: Body temperature decreased
     Dosage: ^50^ MG, 1X/DAY
     Route: 048
     Dates: start: 202106, end: 2022

REACTIONS (2)
  - Papillary thyroid cancer [Recovered/Resolved]
  - Drug ineffective for unapproved indication [Recovered/Resolved]

NARRATIVE: CASE EVENT DATE: 20210601
